FAERS Safety Report 13449227 (Version 2)
Quarter: 2017Q2

REPORT INFORMATION
  Report Type: Spontaneous
  Country: CA (occurrence: CA)
  Receive Date: 20170417
  Receipt Date: 20170517
  Transmission Date: 20170830
  Serious: Yes (Other)
  Sender: FDA-Public Use
  Company Number: CA-PFIZER INC-2017156896

PATIENT
  Age: 88 Year
  Sex: Female
  Weight: 41 kg

DRUGS (4)
  1. SYNTHROID [Concomitant]
     Active Substance: LEVOTHYROXINE SODIUM
     Indication: HYPOTHYROIDISM
     Dosage: 2.5 UG, UNK
     Route: 048
  2. IMOVANE [Concomitant]
     Active Substance: ZOPICLONE
     Dosage: 2 MG, DAILY
     Route: 048
  3. TOVIAZ [Suspect]
     Active Substance: FESOTERODINE FUMARATE
     Indication: HYPERTONIC BLADDER
     Dosage: 2 MG, 0.5 DF, 2X/DAY (IN THE MORNING AND LATER IN DAY)
     Route: 048
     Dates: start: 201701, end: 20170121
  4. CELEBREX [Concomitant]
     Active Substance: CELECOXIB
     Indication: ARTHRITIS
     Dosage: 1 DF, 1X/DAY
     Route: 048

REACTIONS (3)
  - Choreoathetosis [Recovered/Resolved with Sequelae]
  - Intentional product misuse [Unknown]
  - Dry mouth [Unknown]

NARRATIVE: CASE EVENT DATE: 201701
